FAERS Safety Report 5277389-7 (Version None)
Quarter: 2007Q1

REPORT INFORMATION
  Report Type: 
  Country: None (occurrence: None)
  Receive Date: 20061213
  Receipt Date: 20050520
  Transmission Date: 20070707
  Serious: No
  Sender: FDA-Public Use
  Company Number: 2005UW09149

PATIENT
  Age: 45 Year
  Sex: Female

DRUGS (7)
  1. SEROQUEL [Suspect]
     Dosage: 800 MG PO
     Route: 048
     Dates: start: 20050101
  2. GEODON [Concomitant]
  3. HALDOL [Concomitant]
  4. AMBIEN [Concomitant]
  5. LITHIUM CARBONATE [Concomitant]
  6. COGENTIN [Concomitant]
  7. XANAX [Concomitant]

REACTIONS (2)
  - CHOREOATHETOSIS [None]
  - TARDIVE DYSKINESIA [None]
